FAERS Safety Report 13243410 (Version 1)
Quarter: 2017Q1

REPORT INFORMATION
  Report Type: Spontaneous
  Country: US (occurrence: US)
  Receive Date: 20170216
  Receipt Date: 20170216
  Transmission Date: 20170428
  Serious: No
  Sender: FDA-Public Use
  Company Number: US-ALLERGAN-1681532US

PATIENT
  Age: 57 Year
  Sex: Female

DRUGS (4)
  1. KYBELLA [Suspect]
     Active Substance: DEOXYCHOLIC ACID
     Dosage: 2 ML, SINGLE
     Route: 058
     Dates: start: 20160908, end: 20160908
  2. KYBELLA [Suspect]
     Active Substance: DEOXYCHOLIC ACID
     Dosage: 2 ML, SINGLE
     Route: 058
     Dates: start: 20160804, end: 20160804
  3. KYBELLA [Suspect]
     Active Substance: DEOXYCHOLIC ACID
     Indication: FAT TISSUE INCREASED
     Dosage: 4 ML, SINGLE
     Route: 058
     Dates: start: 20160429, end: 20160429
  4. KYBELLA [Suspect]
     Active Substance: DEOXYCHOLIC ACID
     Dosage: 3 ML, SINGLE
     Route: 058
     Dates: start: 20160614, end: 20160614

REACTIONS (1)
  - Fat redistribution [Unknown]

NARRATIVE: CASE EVENT DATE: 20161207
